FAERS Safety Report 5707508-7 (Version None)
Quarter: 2008Q2

REPORT INFORMATION
  Report Type: 
  Country: None (occurrence: None)
  Receive Date: 20080416
  Receipt Date: 20080404
  Transmission Date: 20081010
  Serious: Yes (Other)
  Sender: FDA-Public Use
  Company Number: US-PFIZER INC-2006126943

PATIENT
  Sex: Female
  Weight: 119.8 kg

DRUGS (11)
  1. LYRICA [Suspect]
     Indication: NEURALGIA
     Route: 048
     Dates: start: 20060918, end: 20061024
  2. LYRICA [Suspect]
     Indication: BURNING SENSATION
  3. LYRICA [Suspect]
     Indication: LUMBAR RADICULOPATHY
  4. PERCOCET [Concomitant]
  5. TRAZODONE HCL [Concomitant]
  6. CELEBREX [Concomitant]
  7. SINGULAIR [Concomitant]
  8. ZANTAC [Concomitant]
  9. PHENERGAN ^WYETH-AYERST^ [Concomitant]
  10. EFFEXOR [Concomitant]
  11. KLONOPIN [Concomitant]

REACTIONS (2)
  - ACTIVITIES OF DAILY LIVING IMPAIRED [None]
  - WEIGHT INCREASED [None]
